FAERS Safety Report 8888597 (Version 2)
Quarter: 2012Q4

REPORT INFORMATION
  Report Type: 
  Country: JP (occurrence: JP)
  Receive Date: 20121106
  Receipt Date: 20121120
  Transmission Date: 20130627
  Serious: Yes (Other)
  Sender: FDA-Public Use
  Company Number: JP-ABBOTT-12P-087-1004120-00

PATIENT
  Age: 32 Year
  Sex: Male
  Weight: 51 kg

DRUGS (4)
  1. SEVOFLURANE [Suspect]
     Indication: MAINTENANCE OF ANAESTHESIA
     Route: 055
  2. PROPOFOL [Concomitant]
     Indication: INDUCTION OF ANAESTHESIA
  3. ROCURONIUM [Concomitant]
     Indication: INDUCTION OF ANAESTHESIA
  4. REMIFENTANIL [Concomitant]
     Indication: INDUCTION OF ANAESTHESIA

REACTIONS (2)
  - Pneumonia [Unknown]
  - Hyperthermia malignant [Unknown]
